FAERS Safety Report 26009165 (Version 1)
Quarter: 2025Q4

REPORT INFORMATION
  Report Type: Report from Study
  Country: CN (occurrence: CN)
  Receive Date: 20251107
  Receipt Date: 20251107
  Transmission Date: 20260118
  Serious: Yes (Hospitalization, Other)
  Sender: ROCHE
  Company Number: CN-ROCHE-10000285412

PATIENT
  Age: 57 Year
  Sex: Female
  Weight: 62 kg

DRUGS (78)
  1. POLATUZUMAB VEDOTIN [Suspect]
     Active Substance: POLATUZUMAB VEDOTIN
     Indication: Diffuse large B-cell lymphoma
     Dosage: END DATE- 09-MAR-2025
     Route: 042
     Dates: start: 20250309
  2. POLATUZUMAB VEDOTIN [Suspect]
     Active Substance: POLATUZUMAB VEDOTIN
     Dosage: END DATE-03-APR-2025
     Route: 042
     Dates: start: 20250403
  3. POLATUZUMAB VEDOTIN [Suspect]
     Active Substance: POLATUZUMAB VEDOTIN
     Dosage: END DATE-03-APR-2025
     Route: 042
     Dates: start: 20250426, end: 20250426
  4. ETOPOSIDE [Suspect]
     Active Substance: ETOPOSIDE
     Indication: Diffuse large B-cell lymphoma
     Dosage: START DATE-10-MAR-2025
     Route: 042
     Dates: end: 20250312
  5. ETOPOSIDE [Suspect]
     Active Substance: ETOPOSIDE
     Dosage: START DATE-04-APR-2025
     Route: 042
     Dates: end: 20250406
  6. ETOPOSIDE [Suspect]
     Active Substance: ETOPOSIDE
     Dosage: START DATE-04-APR-2025
     Route: 042
     Dates: end: 20250429
  7. CARBOPLATIN [Suspect]
     Active Substance: CARBOPLATIN
     Indication: Diffuse large B-cell lymphoma
     Dosage: START DATE-11-MAR-2025
     Route: 042
     Dates: end: 20250311
  8. CARBOPLATIN [Suspect]
     Active Substance: CARBOPLATIN
     Dosage: START DATE-05-APR-2025
     Route: 042
     Dates: end: 20250405
  9. CARBOPLATIN [Suspect]
     Active Substance: CARBOPLATIN
     Dosage: START DATE-05-APR-2025
     Route: 042
     Dates: end: 20250428
  10. IFOSFAMIDE [Suspect]
     Active Substance: IFOSFAMIDE
     Indication: Diffuse large B-cell lymphoma
     Dosage: START DATE- 11-MAR-2025
     Route: 042
     Dates: end: 20250311
  11. IFOSFAMIDE [Suspect]
     Active Substance: IFOSFAMIDE
     Dosage: START DATE-05-APR-2025
     Route: 042
     Dates: end: 20250405
  12. IFOSFAMIDE [Suspect]
     Active Substance: IFOSFAMIDE
     Dosage: START DATE-05-APR-2025
     Route: 042
     Dates: end: 20250428
  13. INSULIN HUMAN [Concomitant]
     Active Substance: INSULIN HUMAN
     Route: 042
     Dates: start: 20250426, end: 20250426
  14. INSULIN HUMAN [Concomitant]
     Active Substance: INSULIN HUMAN
     Route: 042
     Dates: start: 20250402, end: 20250406
  15. INSULIN HUMAN [Concomitant]
     Active Substance: INSULIN HUMAN
     Route: 042
     Dates: start: 20250427, end: 20250429
  16. INSULIN HUMAN [Concomitant]
     Active Substance: INSULIN HUMAN
     Route: 042
     Dates: start: 20250401, end: 20250401
  17. INSULIN HUMAN [Concomitant]
     Active Substance: INSULIN HUMAN
     Route: 042
     Dates: start: 20250525, end: 20250525
  18. INSULIN HUMAN [Concomitant]
     Active Substance: INSULIN HUMAN
     Route: 042
     Dates: start: 20250526, end: 20250528
  19. SODIUM BICARBONATE [Concomitant]
     Active Substance: SODIUM BICARBONATE
     Route: 042
     Dates: start: 20250426, end: 20250426
  20. SODIUM BICARBONATE [Concomitant]
     Active Substance: SODIUM BICARBONATE
     Route: 042
     Dates: start: 20250401, end: 20250401
  21. SODIUM BICARBONATE [Concomitant]
     Active Substance: SODIUM BICARBONATE
     Route: 042
     Dates: start: 20250402, end: 20250406
  22. SODIUM BICARBONATE [Concomitant]
     Active Substance: SODIUM BICARBONATE
     Route: 048
     Dates: start: 20250403, end: 20250406
  23. SODIUM BICARBONATE [Concomitant]
     Active Substance: SODIUM BICARBONATE
     Route: 048
     Dates: start: 20250402, end: 20250402
  24. SODIUM BICARBONATE [Concomitant]
     Active Substance: SODIUM BICARBONATE
     Route: 048
     Dates: start: 20250525, end: 20250525
  25. SODIUM BICARBONATE [Concomitant]
     Active Substance: SODIUM BICARBONATE
     Route: 048
     Dates: start: 20250526, end: 20250528
  26. PROMETHAZINE HYDROCHLORIDE [Concomitant]
     Active Substance: PROMETHAZINE HYDROCHLORIDE
     Route: 030
     Dates: start: 20250403
  27. PROMETHAZINE HYDROCHLORIDE [Concomitant]
     Active Substance: PROMETHAZINE HYDROCHLORIDE
     Route: 030
     Dates: start: 20250426, end: 20250426
  28. PROMETHAZINE HYDROCHLORIDE [Concomitant]
     Active Substance: PROMETHAZINE HYDROCHLORIDE
     Route: 030
     Dates: start: 20250525, end: 20250525
  29. PROMETHAZINE HYDROCHLORIDE [Concomitant]
     Active Substance: PROMETHAZINE HYDROCHLORIDE
     Route: 030
     Dates: start: 20250620, end: 20250620
  30. DIPHENHYDRAMINE HYDROCHLORIDE [Concomitant]
     Active Substance: DIPHENHYDRAMINE HYDROCHLORIDE
     Route: 048
     Dates: start: 20250403, end: 20250403
  31. DIPHENHYDRAMINE HYDROCHLORIDE [Concomitant]
     Active Substance: DIPHENHYDRAMINE HYDROCHLORIDE
     Route: 048
     Dates: start: 20250426, end: 20250426
  32. DIPHENHYDRAMINE HYDROCHLORIDE [Concomitant]
     Active Substance: DIPHENHYDRAMINE HYDROCHLORIDE
     Route: 048
     Dates: start: 20250525, end: 20250525
  33. DIPHENHYDRAMINE HYDROCHLORIDE [Concomitant]
     Active Substance: DIPHENHYDRAMINE HYDROCHLORIDE
     Route: 048
     Dates: start: 20250620, end: 20250620
  34. LIDOCAINE HYDROCHLORIDE [Concomitant]
     Active Substance: LIDOCAINE HYDROCHLORIDE
     Route: 058
     Dates: start: 20250331, end: 20250331
  35. LIDOCAINE HYDROCHLORIDE [Concomitant]
     Active Substance: LIDOCAINE HYDROCHLORIDE
     Route: 058
     Dates: start: 20250427, end: 20250427
  36. TROPISETRON HYDROCHLORIDE [Concomitant]
     Active Substance: TROPISETRON HYDROCHLORIDE
     Route: 042
     Dates: start: 20250404, end: 20250406
  37. TROPISETRON HYDROCHLORIDE [Concomitant]
     Active Substance: TROPISETRON HYDROCHLORIDE
     Route: 042
     Dates: start: 20250427, end: 20250429
  38. TROPISETRON HYDROCHLORIDE [Concomitant]
     Active Substance: TROPISETRON HYDROCHLORIDE
     Route: 042
     Dates: start: 20250526, end: 20250529
  39. TROPISETRON HYDROCHLORIDE [Concomitant]
     Active Substance: TROPISETRON HYDROCHLORIDE
     Route: 042
     Dates: start: 20250526, end: 20250528
  40. POVIDONE-IODINE [Concomitant]
     Active Substance: POVIDONE-IODINE
     Route: 050
     Dates: start: 20250401, end: 20250406
  41. POVIDONE-IODINE [Concomitant]
     Active Substance: POVIDONE-IODINE
     Route: 050
     Dates: start: 20250425, end: 20250429
  42. POVIDONE-IODINE [Concomitant]
     Active Substance: POVIDONE-IODINE
     Route: 050
     Dates: start: 20250512, end: 20250518
  43. POVIDONE-IODINE [Concomitant]
     Active Substance: POVIDONE-IODINE
     Dosage: OTHER ROUTE OF MEDICATION ADMIN-HIP BATH
     Route: 050
     Dates: start: 20250524, end: 20250528
  44. POVIDONE-IODINE [Concomitant]
     Active Substance: POVIDONE-IODINE
     Dosage: OTHER ROUTE OF MEDICATION ADMIN-HIP BATH
     Route: 050
     Dates: start: 20250621, end: 20250621
  45. compound chlorhexidine gargle [Concomitant]
     Route: 050
     Dates: start: 20250401, end: 20250406
  46. compound chlorhexidine gargle [Concomitant]
     Route: 050
     Dates: start: 20250425, end: 20250429
  47. compound chlorhexidine gargle [Concomitant]
     Route: 050
     Dates: start: 20250524, end: 20250528
  48. compound chlorhexidine gargle [Concomitant]
     Route: 050
     Dates: start: 20250621, end: 20250621
  49. TORSEMIDE [Concomitant]
     Active Substance: TORSEMIDE
     Route: 042
     Dates: start: 20250404, end: 20250404
  50. BICYCLOL [Concomitant]
     Active Substance: BICYCLOL
     Route: 048
     Dates: start: 20250425, end: 20250425
  51. BICYCLOL [Concomitant]
     Active Substance: BICYCLOL
     Route: 048
     Dates: start: 20250426, end: 20250429
  52. BICYCLOL [Concomitant]
     Active Substance: BICYCLOL
     Route: 048
     Dates: start: 20250525, end: 20250525
  53. BICYCLOL [Concomitant]
     Active Substance: BICYCLOL
     Route: 048
     Dates: start: 20250526, end: 20250528
  54. Diisopropylamine Dichloroacetate and Sodium Gluconate [Concomitant]
     Route: 042
     Dates: start: 20250426, end: 20250429
  55. Diisopropylamine Dichloroacetate and Sodium Gluconate [Concomitant]
     Route: 042
     Dates: start: 20250525, end: 20250528
  56. FOLIC ACID [Concomitant]
     Active Substance: FOLIC ACID
     Route: 048
     Dates: start: 20250428, end: 20250428
  57. FOLIC ACID [Concomitant]
     Active Substance: FOLIC ACID
     Route: 048
     Dates: start: 20250429
  58. METHYLCOBALAMIN [Concomitant]
     Active Substance: METHYLCOBALAMIN
     Route: 048
     Dates: start: 20250428, end: 20250429
  59. METHYLCOBALAMIN [Concomitant]
     Active Substance: METHYLCOBALAMIN
     Route: 048
     Dates: start: 20250514, end: 20250518
  60. METHYLCOBALAMIN [Concomitant]
     Active Substance: METHYLCOBALAMIN
     Route: 048
     Dates: start: 20250622
  61. ESCITALOPRAM OXALATE [Concomitant]
     Active Substance: ESCITALOPRAM OXALATE
     Route: 048
     Dates: start: 20250428, end: 20250428
  62. BUSPIRONE HYDROCHLORIDE [Concomitant]
     Active Substance: BUSPIRONE HYDROCHLORIDE
     Route: 048
     Dates: start: 20250427, end: 20250428
  63. ETHAMSYLATE [Concomitant]
     Active Substance: ETHAMSYLATE
     Route: 042
     Dates: start: 20250511, end: 20250511
  64. ETHAMSYLATE [Concomitant]
     Active Substance: ETHAMSYLATE
     Route: 042
     Dates: start: 20250512, end: 20250518
  65. CALCIUM GLUCONATE [Concomitant]
     Active Substance: CALCIUM GLUCONATE
     Route: 042
     Dates: start: 20250514, end: 20250516
  66. CALCIUM GLUCONATE [Concomitant]
     Active Substance: CALCIUM GLUCONATE
     Route: 042
     Dates: start: 20250512, end: 20250512
  67. FERRIC POLYSACCHARIDE COMPLEX [Concomitant]
     Active Substance: FERRIC POLYSACCHARIDE COMPLEX
     Route: 048
     Dates: start: 20250514, end: 20250518
  68. FERRIC POLYSACCHARIDE COMPLEX [Concomitant]
     Active Substance: FERRIC POLYSACCHARIDE COMPLEX
     Route: 048
     Dates: start: 20250622
  69. Leukocyte-depleted apheresis [Concomitant]
     Route: 042
     Dates: start: 20250516, end: 20250516
  70. Leukocyte-depleted apheresis [Concomitant]
     Route: 042
     Dates: start: 20250512, end: 20250512
  71. MESNA [Concomitant]
     Active Substance: MESNA
     Route: 042
     Dates: start: 20250526, end: 20250527
  72. MESNA [Concomitant]
     Active Substance: MESNA
     Route: 042
     Dates: start: 20250311, end: 20250311
  73. MESNA [Concomitant]
     Active Substance: MESNA
     Route: 042
     Dates: start: 20250404, end: 20250404
  74. MESNA [Concomitant]
     Active Substance: MESNA
     Route: 042
     Dates: start: 20250427, end: 20250427
  75. PEGylated Recombinant Human Granulocyte Colony Stimulating Factor [Concomitant]
     Route: 058
     Dates: start: 20250530, end: 20250530
  76. PEGylated Recombinant Human Granulocyte Colony Stimulating Factor [Concomitant]
     Route: 058
     Dates: start: 20250501, end: 20250501
  77. DEXAMETHASONE SODIUM PHOSPHATE [Concomitant]
     Active Substance: DEXAMETHASONE SODIUM PHOSPHATE
  78. METHYLPREDNISOLONE SODIUM SUCCINATE [Concomitant]
     Active Substance: METHYLPREDNISOLONE SODIUM SUCCINATE

REACTIONS (5)
  - Platelet count decreased [Recovered/Resolved]
  - Lymphocyte count decreased [Recovered/Resolved]
  - Anaemia [Not Recovered/Not Resolved]
  - Hypokalaemia [Recovered/Resolved]
  - Hypocalcaemia [Recovered/Resolved]

NARRATIVE: CASE EVENT DATE: 20250309
